FAERS Safety Report 8344970-8 (Version None)
Quarter: 2012Q2

REPORT INFORMATION
  Report Type: 
  Country: None (occurrence: None)
  Receive Date: 20120508
  Receipt Date: 20120424
  Transmission Date: 20120825
  Serious: Yes (Hospitalization)
  Sender: FDA-Public Use
  Company Number: US-ELI_LILLY_AND_COMPANY-US201204008677

PATIENT
  Age: 45 Year
  Sex: Female

DRUGS (6)
  1. CYMBALTA [Suspect]
     Dosage: 120 MG, UNKNOWN
  2. LINAGLIPTIN [Concomitant]
     Indication: DIABETES MELLITUS
     Dosage: UNK
  3. CYMBALTA [Suspect]
     Indication: DIABETIC NEUROPATHY
     Dosage: 60 MG, UNKNOWN
  4. LYRICA [Concomitant]
     Dosage: UNK
  5. CYMBALTA [Suspect]
     Dosage: 90 MG, UNKNOWN
  6. METFORMIN [Concomitant]
     Indication: DIABETES MELLITUS
     Dosage: UNK

REACTIONS (2)
  - DRUG INEFFECTIVE [None]
  - PYELONEPHRITIS [None]
